FAERS Safety Report 5543528-3 (Version None)
Quarter: 2007Q4

REPORT INFORMATION
  Report Type: 
  Country: None (occurrence: None)
  Receive Date: 20071210
  Receipt Date: 20061107
  Transmission Date: 20080405
  Serious: No
  Sender: FDA-Public Use
  Company Number: US-AMGEN-KDL199529

PATIENT
  Sex: Female

DRUGS (3)
  1. ENBREL [Suspect]
     Indication: RHEUMATOID ARTHRITIS
     Route: 058
     Dates: start: 20061101
  2. PREDNISONE [Concomitant]
     Dates: start: 20030101
  3. AZULFIDINE EN-TABS [Concomitant]
     Dates: start: 20030101

REACTIONS (2)
  - CONTUSION [None]
  - TENDERNESS [None]
